FAERS Safety Report 7542893-5 (Version None)
Quarter: 2011Q2

REPORT INFORMATION
  Report Type: 
  Country: None (occurrence: None)
  Receive Date: 20110613
  Receipt Date: 20110531
  Transmission Date: 20111010
  Serious: Yes (Other)
  Sender: FDA-Public Use
  Company Number: PHHY2011AR47992

PATIENT
  Sex: Female

DRUGS (2)
  1. EXELON [Suspect]
     Indication: MEMORY IMPAIRMENT
     Dosage: PATCH 10 CM DAILY
     Route: 062
  2. EXELON [Suspect]
     Dosage: PATCH 5

REACTIONS (2)
  - VOMITING [None]
  - ABDOMINAL MASS [None]
